FAERS Safety Report 21652586 (Version 1)
Quarter: 2022Q4

REPORT INFORMATION
  Report Type: Spontaneous
  Country: CN (occurrence: CN)
  Receive Date: 20221128
  Receipt Date: 20221128
  Transmission Date: 20230113
  Serious: Yes (Life-Threatening, Hospitalization)
  Sender: FDA-Public Use
  Company Number: CN-BAYER-2022A161479

PATIENT
  Age: 52 Year
  Sex: Female
  Weight: 41 kg

DRUGS (1)
  1. AVELOX [Suspect]
     Active Substance: MOXIFLOXACIN HYDROCHLORIDE
     Indication: Upper respiratory tract infection
     Dosage: 400 MG, QD
     Route: 048
     Dates: start: 20220927, end: 20220928

REACTIONS (11)
  - Mental disorder [Recovered/Resolved]
  - Abnormal behaviour [Recovered/Resolved]
  - Cognitive disorder [Recovered/Resolved]
  - Nightmare [Recovered/Resolved]
  - Agitation [Recovered/Resolved]
  - Dysphoria [Recovered/Resolved]
  - Mania [Recovered/Resolved]
  - Flight of ideas [Recovered/Resolved]
  - Disorganised speech [Recovered/Resolved]
  - Screaming [Recovered/Resolved]
  - Off label use [None]

NARRATIVE: CASE EVENT DATE: 20220927
